FAERS Safety Report 4771515-1 (Version None)
Quarter: 2005Q3

REPORT INFORMATION
  Report Type: 
  Country: None (occurrence: None)
  Receive Date: 20050913
  Receipt Date: 20050913
  Transmission Date: 20060218
  Serious: Yes (Hospitalization)
  Sender: FDA-Public Use
  Company Number: None

PATIENT
  Age: 61 Year
  Sex: Male
  Weight: 59.8748 kg

DRUGS (6)
  1. DOCETAXEL [Suspect]
     Indication: NASAL SINUS CANCER
     Dosage: 127 MILLIGRAMS EVERY 3 WEEKS IV DRIP
     Route: 041
     Dates: start: 20050818, end: 20050818
  2. REVLIMID [Suspect]
     Dosage: 5 MILLIGRAMS DAILY FOR 14 DAYS PO
     Route: 048
     Dates: start: 20050818, end: 20050827
  3. WELLBUTRIN [Concomitant]
  4. BUSPAR [Concomitant]
  5. OXYCODONE [Concomitant]
  6. ATIVAN [Concomitant]

REACTIONS (6)
  - CONFUSIONAL STATE [None]
  - DISORIENTATION [None]
  - HYPONATRAEMIA [None]
  - LOBAR PNEUMONIA [None]
  - NEUTROPENIA [None]
  - PYREXIA [None]
